FAERS Safety Report 18163942 (Version 1)
Quarter: 2020Q3

REPORT INFORMATION
  Report Type: Spontaneous
  Country: US (occurrence: US)
  Receive Date: 20200818
  Receipt Date: 20200818
  Transmission Date: 20201103
  Serious: No
  Sender: FDA-Public Use
  Company Number: US-OTSUKA-2018_020205

PATIENT
  Sex: Female

DRUGS (2)
  1. ABILIFY [Suspect]
     Active Substance: ARIPIPRAZOLE
     Indication: ANXIETY
  2. ABILIFY [Suspect]
     Active Substance: ARIPIPRAZOLE
     Indication: MAJOR DEPRESSION
     Dosage: 5 MT QD
     Route: 065
     Dates: start: 2013, end: 2014

REACTIONS (9)
  - Injury [Unknown]
  - Gambling disorder [Recovered/Resolved]
  - Emotional distress [Unknown]
  - Economic problem [Unknown]
  - Obsessive-compulsive disorder [Unknown]
  - Bankruptcy [Unknown]
  - Mental disorder [Unknown]
  - Condition aggravated [Recovered/Resolved]
  - Product use in unapproved indication [Unknown]

NARRATIVE: CASE EVENT DATE: 2013
